FAERS Safety Report 7097460-7 (Version None)
Quarter: 2010Q4

REPORT INFORMATION
  Report Type: 
  Country: None (occurrence: None)
  Receive Date: 20101111
  Receipt Date: 20101102
  Transmission Date: 20110411
  Serious: Yes (Other)
  Sender: FDA-Public Use
  Company Number: FR-GILEAD-2010-0030426

PATIENT
  Age: 44 Year
  Sex: Female
  Weight: 84 kg

DRUGS (3)
  1. ATRIPLA [Suspect]
     Indication: HIV INFECTION
     Dates: start: 20100618, end: 20100625
  2. VIREAD [Suspect]
     Indication: HIV INFECTION
     Dates: start: 20100625, end: 20100629
  3. EMTRIVA [Suspect]
     Indication: HIV INFECTION
     Dates: start: 20100625, end: 20100629

REACTIONS (2)
  - CYTOLYTIC HEPATITIS [None]
  - VERTIGO [None]
